FAERS Safety Report 18137846 (Version 2)
Quarter: 2021Q4

REPORT INFORMATION
  Report Type: Spontaneous
  Country: US (occurrence: US)
  Receive Date: 20200812
  Receipt Date: 20211029
  Transmission Date: 20220303
  Serious: Yes (Other)
  Sender: FDA-Public Use
  Company Number: US-SAARTEMIS-SAC202008070455

PATIENT
  Age: 48 Year
  Sex: Female

DRUGS (1)
  1. ZANTAC [Suspect]
     Active Substance: RANITIDINE HYDROCHLORIDE
     Indication: Dyspepsia
     Dosage: 150 MG, FREQUENCY: OTHER
     Dates: start: 199001, end: 201905

REACTIONS (6)
  - Thyroid cancer [Unknown]
  - Hepatic cancer [Unknown]
  - Pancreatic carcinoma [Unknown]
  - Uterine cancer [Unknown]
  - Hepatic steatosis [Unknown]
  - Pancreatitis [Unknown]

NARRATIVE: CASE EVENT DATE: 20120101
